FAERS Safety Report 8512630-6 (Version None)
Quarter: 2012Q2

REPORT INFORMATION
  Report Type: 
  Country: None (occurrence: None)
  Receive Date: 20120405
  Receipt Date: 20080915
  Transmission Date: 20120825
  Serious: Yes (Hospitalization)
  Sender: FDA-Public Use
  Company Number: PHEN2008US07608

PATIENT
  Sex: Male
  Weight: 57.6 kg

DRUGS (3)
  1. CYMBALTA [Concomitant]
  2. SPIRIVA [Concomitant]
  3. RECLAST [Suspect]
     Dosage: INFUSION
     Dates: start: 20080501

REACTIONS (1)
  - BONE PAIN [None]
